FAERS Safety Report 19427546 (Version 2)
Quarter: 2021Q3

REPORT INFORMATION
  Report Type: Spontaneous
  Country: US (occurrence: US)
  Receive Date: 20210617
  Receipt Date: 20210707
  Transmission Date: 20211014
  Serious: Yes (Life-Threatening, Hospitalization, Other)
  Sender: FDA-Public Use
  Company Number: US-LUPIN PHARMACEUTICALS INC.-2021-09470

PATIENT
  Sex: Male

DRUGS (1)
  1. OXYCODONE [Suspect]
     Active Substance: OXYCODONE
     Indication: PRODUCT USED FOR UNKNOWN INDICATION
     Dosage: UNK
     Route: 065

REACTIONS (7)
  - Bradypnoea [Unknown]
  - Hypopnoea [Unknown]
  - Respiratory rate decreased [Unknown]
  - Cyanosis [Unknown]
  - Fall [Unknown]
  - Intentional overdose [Unknown]
  - Unresponsive to stimuli [Unknown]
